FAERS Safety Report 5284446-8 (Version None)
Quarter: 2007Q2

REPORT INFORMATION
  Report Type: 
  Country: None (occurrence: None)
  Receive Date: 20070403
  Receipt Date: 20070330
  Transmission Date: 20071010
  Serious: Yes (Other)
  Sender: FDA-Public Use
  Company Number: 2006UW27530

PATIENT
  Age: 647 Month
  Sex: Female
  Weight: 78.2 kg

DRUGS (3)
  1. SEROQUEL [Suspect]
     Indication: BIPOLAR DISORDER
     Route: 048
     Dates: start: 20010101
  2. ABILIFY [Concomitant]
     Dates: start: 20051001
  3. HALDOL [Concomitant]
     Dates: start: 19830101, end: 19890101

REACTIONS (2)
  - DIABETES MELLITUS [None]
  - LOSS OF CONSCIOUSNESS [None]
